FAERS Safety Report 8796414 (Version 1)
Quarter: 2012Q4

REPORT INFORMATION
  Report Type: 
  Country: BO (occurrence: BO)
  Receive Date: 20120920
  Receipt Date: 20120920
  Transmission Date: 20130627
  Serious: Yes (Death)
  Sender: FDA-Public Use
  Company Number: PHHY2012AR081227

PATIENT
  Sex: Female

DRUGS (2)
  1. GLIVEC [Suspect]
     Indication: CHRONIC MYELOID LEUKAEMIA
     Dosage: 400 mg, daily
     Dates: start: 200910
  2. GLIVEC [Suspect]
     Dosage: 300 mg, daily

REACTIONS (3)
  - Chronic myeloid leukaemia [Fatal]
  - Malignant neoplasm progression [Fatal]
  - Blast crisis in myelogenous leukaemia [Fatal]
